FAERS Safety Report 24315601 (Version 1)
Quarter: 2024Q3

REPORT INFORMATION
  Report Type: Spontaneous
  Country: IE (occurrence: IE)
  Receive Date: 20240913
  Receipt Date: 20240913
  Transmission Date: 20241017
  Serious: Yes (Other)
  Sender: TEVA
  Company Number: None

PATIENT
  Age: 67 Year
  Sex: Male

DRUGS (4)
  1. ZOLPIDEM [Suspect]
     Active Substance: ZOLPIDEM TARTRATE
     Indication: Insomnia
     Dosage: ZOLPIDEM TARTRATE TEVA
     Route: 065
     Dates: start: 20231116
  2. LOSARTAN [Concomitant]
     Active Substance: LOSARTAN\LOSARTAN POTASSIUM
     Indication: Product used for unknown indication
     Dosage: LOSARTAN (GENERIC)
     Route: 065
  3. SERLAN [Concomitant]
     Indication: Product used for unknown indication
     Dosage: FILM-COATED TABLET
     Route: 065
  4. CEPHALEXIN [Concomitant]
     Active Substance: CEPHALEXIN
     Indication: Product used for unknown indication
     Dosage: CEFALEXIN (G)
     Route: 065

REACTIONS (11)
  - Hypersomnia [Unknown]
  - Nightmare [Not Recovered/Not Resolved]
  - Balance disorder [Unknown]
  - Transient global amnesia [Not Recovered/Not Resolved]
  - Confusional state [Unknown]
  - Hallucination, auditory [Not Recovered/Not Resolved]
  - Somnambulism [Not Recovered/Not Resolved]
  - Somnolence [Unknown]
  - Product substitution issue [Not Recovered/Not Resolved]
  - Disorientation [Unknown]
  - Dysarthria [Unknown]

NARRATIVE: CASE EVENT DATE: 20231116
